FAERS Safety Report 8372115-7 (Version None)
Quarter: 2012Q2

REPORT INFORMATION
  Report Type: 
  Country: None (occurrence: None)
  Receive Date: 20120521
  Receipt Date: 20120511
  Transmission Date: 20120825
  Serious: Yes (Life-Threatening, Hospitalization)
  Sender: FDA-Public Use
  Company Number: PHHO2012PT006400

PATIENT
  Sex: Male
  Weight: 78 kg

DRUGS (5)
  1. GILENYA [Suspect]
     Indication: MULTIPLE SCLEROSIS
     Dosage: 0.5 MG, QD
     Route: 048
     Dates: start: 20110426, end: 20120419
  2. PREGABALIN [Concomitant]
     Dosage: 75 MG, BID
     Dates: start: 20120228, end: 20120423
  3. ESCITALOPRAM [Concomitant]
     Dosage: 10 MG, QD
     Dates: start: 20080722, end: 20120423
  4. TRAZODONE [Concomitant]
     Dosage: 150 MG, QD
     Dates: start: 20080722, end: 20120426
  5. AMITRIPTYLINE HCL [Concomitant]
     Dosage: 50 MG, QD
     Dates: start: 20120207, end: 20120426

REACTIONS (2)
  - HISTIOCYTOSIS HAEMATOPHAGIC [None]
  - DUODENAL ULCER PERFORATION [None]
